FAERS Safety Report 5924315-0 (Version None)
Quarter: 2008Q4

REPORT INFORMATION
  Report Type: 
  Country: None (occurrence: None)
  Receive Date: 20081020
  Receipt Date: 20081010
  Transmission Date: 20090506
  Serious: Yes (Hospitalization)
  Sender: FDA-Public Use
  Company Number: US-PFIZER INC-2008053063

PATIENT
  Sex: Male
  Weight: 72 kg

DRUGS (9)
  1. SUTENT [Suspect]
     Indication: PROSTATE CANCER
     Route: 048
     Dates: start: 20080513, end: 20080617
  2. DOCETAXEL [Suspect]
     Indication: PROSTATE CANCER
     Route: 042
     Dates: start: 20080513, end: 20080513
  3. DOCETAXEL [Suspect]
     Route: 042
     Dates: start: 20080604, end: 20080604
  4. PREDNISONE [Suspect]
     Indication: PROSTATE CANCER
     Route: 048
     Dates: start: 20080513, end: 20080624
  5. HYDROCHLOROTHIAZIDE [Concomitant]
     Route: 048
     Dates: start: 20080418
  6. LIPITOR [Concomitant]
     Route: 048
     Dates: start: 20080101
  7. ACETYLSALICYLIC ACID SRT [Concomitant]
     Route: 048
     Dates: start: 20080618
  8. LUPRON [Concomitant]
     Route: 058
     Dates: start: 20030101
  9. LISINOPRIL [Concomitant]
     Route: 048
     Dates: start: 20080618

REACTIONS (2)
  - CHEST PAIN [None]
  - DYSPNOEA [None]
